FAERS Safety Report 8538348-1 (Version None)
Quarter: 2012Q3

REPORT INFORMATION
  Report Type: 
  Country: None (occurrence: None)
  Receive Date: 20120726
  Receipt Date: 20120723
  Transmission Date: 20120928
  Serious: No
  Sender: FDA-Public Use
  Company Number: US-PFIZER INC-2012178169

PATIENT
  Sex: Female
  Weight: 61.224 kg

DRUGS (3)
  1. CHANTIX [Suspect]
     Dosage: 1 MG, UNK
     Route: 048
     Dates: end: 20120530
  2. CHANTIX [Suspect]
     Indication: SMOKING CESSATION THERAPY
     Dosage: UNK
     Route: 048
     Dates: start: 20110101, end: 20110101
  3. CHANTIX [Suspect]
     Dosage: UNK
     Route: 048
     Dates: start: 20120401

REACTIONS (5)
  - VOMITING [None]
  - BURNING SENSATION [None]
  - BLISTER [None]
  - NIGHTMARE [None]
  - NAUSEA [None]
